FAERS Safety Report 15570881 (Version 1)
Quarter: 2018Q4

REPORT INFORMATION
  Report Type: Spontaneous
  Country: IT (occurrence: IT)
  Receive Date: 20181031
  Receipt Date: 20181031
  Transmission Date: 20190205
  Serious: Yes (Other)
  Sender: FDA-Public Use
  Company Number: IT-PFIZER INC-2018441061

PATIENT
  Age: 80 Year
  Sex: Female

DRUGS (11)
  1. LEVOPRAID [LEVOSULPIRIDE] [Concomitant]
  2. AMOXICILLINA/ACIDO CLAVULANICO [Concomitant]
     Active Substance: AMOXICILLIN\CLAVULANIC ACID
  3. AUGMENTIN [AMOXICILLIN;CLAVULANIC ACID] [Concomitant]
  4. DIBASE [Concomitant]
     Active Substance: CHOLECALCIFEROL
  5. IBRANCE [Suspect]
     Active Substance: PALBOCICLIB
     Indication: BREAST CANCER
     Dosage: 125 MG, 1X/DAY
     Route: 048
     Dates: start: 20180307
  6. MEDROL [METHYLPREDNISOLONE SODIUM PHOSPHATE] [Concomitant]
  7. LASIX [Concomitant]
     Active Substance: FUROSEMIDE
  8. LANSOPRAZOLE. [Concomitant]
     Active Substance: LANSOPRAZOLE
  9. ACIDO ZOLEDRONICO MYLAN [Concomitant]
     Dosage: UNK
     Dates: start: 20180117
  10. PARACODINA [DIHYDROCODEINE BITARTRATE] [Concomitant]
  11. FASLODEX [Concomitant]
     Active Substance: FULVESTRANT
     Dates: start: 20180307

REACTIONS (5)
  - Anaemia [Recovered/Resolved]
  - Hyperpyrexia [Recovered/Resolved]
  - Asthenia [Recovered/Resolved]
  - Erysipelas [Recovered/Resolved]
  - Neutropenia [Recovered/Resolved]

NARRATIVE: CASE EVENT DATE: 20180321
